FAERS Safety Report 23646757 (Version 1)
Quarter: 2024Q1

REPORT INFORMATION
  Report Type: Report from Study
  Country: US (occurrence: US)
  Receive Date: 20240319
  Receipt Date: 20240319
  Transmission Date: 20240409
  Serious: Yes (Hospitalization, Other)
  Sender: FDA-Public Use
  Company Number: US-UCBSA-2024012494

PATIENT
  Age: 49 Year
  Sex: Female
  Weight: 79.3 kg

DRUGS (8)
  1. LEVETIRACETAM [Suspect]
     Active Substance: LEVETIRACETAM
     Indication: Seizure
     Dosage: 750 MILLIGRAM, 3X/DAY (TID)
     Route: 048
     Dates: start: 201405
  2. LEVETIRACETAM [Suspect]
     Active Substance: LEVETIRACETAM
     Dosage: 750 MILLIGRAM, 2X/DAY (BID)
     Route: 048
  3. LEVETIRACETAM [Suspect]
     Active Substance: LEVETIRACETAM
     Dosage: 500 MILLIGRAM, 2X/DAY (BID)
     Route: 048
  4. FISH OIL [Concomitant]
     Active Substance: FISH OIL
     Indication: Product used for unknown indication
     Dosage: 1000 MILLIGRAM, ONCE DAILY (QD)
     Route: 048
  5. CYANOCOBALAMIN [Concomitant]
     Active Substance: CYANOCOBALAMIN
     Indication: Product used for unknown indication
     Dosage: 100 MICROGRAM, AS NEEDED (PRN)
     Route: 048
  6. ASPIRIN [Concomitant]
     Active Substance: ASPIRIN
     Indication: Product used for unknown indication
     Dosage: 81 MILLIGRAM, ONCE DAILY (QD)
     Route: 048
  7. VITAMIN D3 [Concomitant]
     Active Substance: CHOLECALCIFEROL
     Indication: Product used for unknown indication
     Dosage: 1000 1000 UNITS
     Route: 048
  8. LANTUS [Concomitant]
     Active Substance: INSULIN GLARGINE
     Indication: Product used for unknown indication
     Dosage: U-100

REACTIONS (6)
  - Seizure [Unknown]
  - Hospitalisation [Unknown]
  - Dizziness [Unknown]
  - Product dose omission in error [Unknown]
  - Product dose omission issue [Unknown]
  - Off label use [Unknown]

NARRATIVE: CASE EVENT DATE: 20140501
